FAERS Safety Report 24872436 (Version 1)
Quarter: 2025Q1

REPORT INFORMATION
  Report Type: Spontaneous
  Country: JP (occurrence: JP)
  Receive Date: 20250122
  Receipt Date: 20250122
  Transmission Date: 20250409
  Serious: Yes (Other)
  Sender: Stallion Laboratories
  Company Number: JP-STL-000250

PATIENT
  Sex: Male

DRUGS (1)
  1. LEVETIRACETAM [Suspect]
     Active Substance: LEVETIRACETAM
     Indication: Temporal lobe epilepsy
     Route: 065

REACTIONS (3)
  - Disease recurrence [Recovered/Resolved]
  - Anterograde amnesia [Recovered/Resolved]
  - Product use in unapproved indication [Unknown]
